FAERS Safety Report 17258651 (Version 3)
Quarter: 2020Q1

REPORT INFORMATION
  Report Type: Spontaneous
  Country: PT (occurrence: PT)
  Receive Date: 20200110
  Receipt Date: 20200127
  Transmission Date: 20200409
  Serious: Yes (Hospitalization, Other)
  Sender: FDA-Public Use
  Company Number: PT-MYLANLABS-2020M1002549

PATIENT
  Age: 67 Year
  Sex: Female

DRUGS (5)
  1. SIMVASTATIN. [Interacting]
     Active Substance: SIMVASTATIN
     Indication: DYSLIPIDAEMIA
     Dosage: UNK
     Route: 065
  2. CLARITHROMYCIN. [Interacting]
     Active Substance: CLARITHROMYCIN
     Indication: SKIN BACTERIAL INFECTION
  3. CIPROFLOXACIN. [Interacting]
     Active Substance: CIPROFLOXACIN
     Indication: MYCOBACTERIUM CHELONAE INFECTION
     Dosage: UNK
  4. CIPROFLOXACIN. [Suspect]
     Active Substance: CIPROFLOXACIN
     Indication: SKIN BACTERIAL INFECTION
     Dosage: UNK
     Route: 065
     Dates: start: 201806
  5. CLARITHROMYCIN. [Interacting]
     Active Substance: CLARITHROMYCIN
     Indication: MYCOBACTERIUM CHELONAE INFECTION
     Dosage: UNK
     Route: 065
     Dates: start: 201806

REACTIONS (10)
  - Quadriparesis [Recovered/Resolved]
  - Skin bacterial infection [Not Recovered/Not Resolved]
  - Off label use [Unknown]
  - Hepatocellular injury [Recovered/Resolved]
  - Mycobacterium chelonae infection [Not Recovered/Not Resolved]
  - Acute kidney injury [Unknown]
  - Rhabdomyolysis [Recovered/Resolved]
  - Drug interaction [Recovered/Resolved]
  - Nausea [Unknown]
  - Diarrhoea [Unknown]
